FAERS Safety Report 6861463-5 (Version None)
Quarter: 2010Q3

REPORT INFORMATION
  Report Type: 
  Country: None (occurrence: None)
  Receive Date: 20100720
  Receipt Date: 20100712
  Transmission Date: 20110219
  Serious: Yes (Other)
  Sender: FDA-Public Use
  Company Number: US-AMGEN-KDL424122

PATIENT
  Sex: Female

DRUGS (1)
  1. ENBREL [Suspect]
     Indication: RHEUMATOID ARTHRITIS
     Route: 058
     Dates: start: 20071206, end: 20100101

REACTIONS (4)
  - AUTOIMMUNE THYROIDITIS [None]
  - CONVULSION [None]
  - FATIGUE [None]
  - SQUAMOUS CELL CARCINOMA [None]
